FAERS Safety Report 16954695 (Version 1)
Quarter: 2019Q4

REPORT INFORMATION
  Report Type: Spontaneous
  Country: US (occurrence: US)
  Receive Date: 20191024
  Receipt Date: 20191024
  Transmission Date: 20200122
  Serious: No
  Sender: FDA-Public Use
  Company Number: US-ZYDUS-033456

PATIENT
  Sex: Female

DRUGS (2)
  1. NATEGLINIDE. [Suspect]
     Active Substance: NATEGLINIDE
     Indication: BLOOD GLUCOSE INCREASED
     Route: 065
  2. METFORMIN [Suspect]
     Active Substance: METFORMIN HYDROCHLORIDE
     Indication: BLOOD GLUCOSE INCREASED
     Route: 065

REACTIONS (1)
  - Drug ineffective [Unknown]
